FAERS Safety Report 6688765-X (Version None)
Quarter: 2010Q2

REPORT INFORMATION
  Report Type: 
  Country: None (occurrence: None)
  Receive Date: 20100420
  Receipt Date: 20100413
  Transmission Date: 20101027
  Serious: Yes (Other)
  Sender: FDA-Public Use
  Company Number: B0648441A

PATIENT
  Sex: Male

DRUGS (2)
  1. PAXIL [Suspect]
     Indication: DEPRESSION
     Dosage: 20MG PER DAY
     Route: 048
     Dates: start: 20100101, end: 20100401
  2. PHENAZEPAM [Concomitant]
     Indication: DEPRESSION
     Route: 048
     Dates: start: 20100101

REACTIONS (3)
  - BLEEDING TIME PROLONGED [None]
  - CONTUSION [None]
  - PLATELET COUNT DECREASED [None]
